FAERS Safety Report 15256575 (Version 3)
Quarter: 2018Q3

REPORT INFORMATION
  Report Type: Spontaneous
  Country: IT (occurrence: IT)
  Receive Date: 20180808
  Receipt Date: 20180926
  Transmission Date: 20181010
  Serious: Yes (Other)
  Sender: FDA-Public Use
  Company Number: IT-PFIZER INC-2018317945

PATIENT
  Age: 70 Year
  Sex: Male
  Weight: 80 kg

DRUGS (8)
  1. LYRICA [Suspect]
     Active Substance: PREGABALIN
     Indication: SCIATICA
     Dosage: UNK
     Dates: start: 20180613, end: 20180613
  2. CORBILTA [Concomitant]
     Active Substance: CARBIDOPA\ENTACAPONE\LEVODOPA
  3. SIRIO [Concomitant]
     Active Substance: CARBIDOPA\MELEVODOPA
  4. DONEPEZIL MYLAN [Concomitant]
     Active Substance: DONEPEZIL
  5. LYRICA [Suspect]
     Active Substance: PREGABALIN
     Indication: NEURALGIA
  6. QUETIAPINE. [Concomitant]
     Active Substance: QUETIAPINE
  7. SINEMET [Concomitant]
     Active Substance: CARBIDOPA\LEVODOPA
  8. RIVOTRIL [Concomitant]
     Active Substance: CLONAZEPAM

REACTIONS (2)
  - Acute psychosis [Recovered/Resolved]
  - Abnormal behaviour [Recovered/Resolved]

NARRATIVE: CASE EVENT DATE: 20180613
